FAERS Safety Report 19699098 (Version 1)
Quarter: 2021Q3

REPORT INFORMATION
  Report Type: Spontaneous
  Country: US (occurrence: US)
  Receive Date: 20210813
  Receipt Date: 20210813
  Transmission Date: 20211014
  Serious: Yes (Other)
  Sender: FDA-Public Use
  Company Number: US-PFIZER INC-202100992848

PATIENT
  Age: 66 Year
  Sex: Female
  Weight: 67.8 kg

DRUGS (4)
  1. CHANTIX [Suspect]
     Active Substance: VARENICLINE TARTRATE
     Indication: NICOTINE DEPENDENCE
     Dosage: 0.5 MG, 1X/DAY, 1?3 DAYS
     Route: 048
     Dates: start: 20210727
  2. ELIQUIS [Concomitant]
     Active Substance: APIXABAN
  3. CHANTIX [Suspect]
     Active Substance: VARENICLINE TARTRATE
     Dosage: 0.5 MG, 2X/DAY, DAYS 4?7
     Route: 048
  4. CHANTIX [Suspect]
     Active Substance: VARENICLINE TARTRATE
     Dosage: 1 MG, 2X/DAY, UP TO 6 MONTHS
     Route: 048

REACTIONS (1)
  - Atrial fibrillation [Unknown]
